FAERS Safety Report 12548384 (Version 14)
Quarter: 2017Q3

REPORT INFORMATION
  Report Type: Spontaneous
  Country: US (occurrence: US)
  Receive Date: 20160712
  Receipt Date: 20170914
  Transmission Date: 20171127
  Serious: Yes (Hospitalization, Other)
  Sender: FDA-Public Use
  Company Number: US-PFIZER INC-2016329575

PATIENT
  Age: 63 Year
  Sex: Female
  Weight: 68.98 kg

DRUGS (13)
  1. COUMADIN [Concomitant]
     Active Substance: WARFARIN SODIUM
     Indication: THROMBOSIS
     Dosage: UNK
     Dates: start: 201407
  2. IBRANCE [Suspect]
     Active Substance: PALBOCICLIB
     Dosage: 100 MG, CYCLIC (D 1-21 Q 28 DAYS)
     Route: 048
     Dates: start: 20170617
  3. IBRANCE [Suspect]
     Active Substance: PALBOCICLIB
     Indication: BREAST CANCER METASTATIC
     Dosage: 125 MG, CYCLIC (DAILY FOR 21 DAYS THEN 7 DAYS OFF)
     Route: 048
     Dates: start: 20160617
  4. IBRANCE [Suspect]
     Active Substance: PALBOCICLIB
     Dosage: UNK
  5. IBRANCE [Suspect]
     Active Substance: PALBOCICLIB
     Dosage: UNK
  6. IBRANCE [Suspect]
     Active Substance: PALBOCICLIB
     Dosage: UNK
  7. IBRANCE [Suspect]
     Active Substance: PALBOCICLIB
     Dosage: UNK
  8. IBRANCE [Suspect]
     Active Substance: PALBOCICLIB
     Dosage: 100 MG, CYCLIC (DAYS 1-21 Q 28 DAYS)
     Route: 048
     Dates: start: 20160617
  9. IBRANCE [Suspect]
     Active Substance: PALBOCICLIB
     Dosage: 75 MG, UNK
  10. LETROZOLE. [Concomitant]
     Active Substance: LETROZOLE
     Dosage: UNK
  11. IBRANCE [Suspect]
     Active Substance: PALBOCICLIB
     Dosage: 100 MG, CYCLIC, (DAYS1-21 Q28 DAYS)
     Route: 048
     Dates: start: 20160617
  12. IBRANCE [Suspect]
     Active Substance: PALBOCICLIB
     Dosage: UNK
  13. IBRANCE [Suspect]
     Active Substance: PALBOCICLIB
     Dosage: UNK

REACTIONS (23)
  - Nephrolithiasis [Unknown]
  - Pain of skin [Not Recovered/Not Resolved]
  - White blood cell count decreased [Unknown]
  - Drug dose omission [Unknown]
  - Diverticulitis [Unknown]
  - Alopecia [Unknown]
  - Diarrhoea [Not Recovered/Not Resolved]
  - Skin exfoliation [Unknown]
  - Dysphonia [Not Recovered/Not Resolved]
  - Nausea [Unknown]
  - Dyspepsia [Unknown]
  - International normalised ratio increased [Unknown]
  - Skin discolouration [Unknown]
  - Abdominal pain [Recovered/Resolved]
  - Prothrombin time prolonged [Unknown]
  - Dyspnoea [Unknown]
  - Cystitis [Unknown]
  - Dry skin [Not Recovered/Not Resolved]
  - Cholelithiasis [Unknown]
  - Medication residue present [Unknown]
  - Epistaxis [Unknown]
  - Constipation [Unknown]
  - Dry mouth [Unknown]

NARRATIVE: CASE EVENT DATE: 20160630
